FAERS Safety Report 25750551 (Version 1)
Quarter: 2025Q3

REPORT INFORMATION
  Report Type: Spontaneous
  Country: US (occurrence: None)
  Receive Date: 20250829
  Receipt Date: 20250829
  Transmission Date: 20251021
  Serious: No
  Sender: FDA-CTU
  Company Number: None

PATIENT
  Age: 35 Year
  Sex: Female
  Weight: 86 kg

DRUGS (1)
  1. PROCHLORPERAZINE [Suspect]
     Active Substance: PROCHLORPERAZINE

REACTIONS (6)
  - Apnoea [None]
  - Unresponsive to stimuli [None]
  - Oxygen saturation decreased [None]
  - Heart rate decreased [None]
  - Lethargy [None]
  - Drug hypersensitivity [None]

NARRATIVE: CASE EVENT DATE: 20250828
